FAERS Safety Report 4701466-X (Version None)
Quarter: 2005Q2

REPORT INFORMATION
  Report Type: 
  Country: None (occurrence: None)
  Receive Date: 20050628
  Receipt Date: 20050616
  Transmission Date: 20051028
  Serious: Yes (Life-Threatening, Hospitalization)
  Sender: FDA-Public Use
  Company Number: US-ROCHE-407866

PATIENT
  Age: 14 Year
  Sex: Male
  Weight: 32 kg

DRUGS (19)
  1. DACLIZUMAB [Suspect]
     Route: 065
     Dates: start: 20050328
  2. ENALAPRIL [Concomitant]
  3. COREG [Concomitant]
  4. RENAGEL [Concomitant]
  5. PHOSLO [Concomitant]
  6. PROTONIX [Concomitant]
  7. DULCOLAX [Concomitant]
  8. NIFEDIPINE [Concomitant]
  9. GANCICLOVIR [Concomitant]
  10. SEPTRA [Concomitant]
  11. CLONIDINE [Concomitant]
  12. MORPHINE [Concomitant]
  13. PHENERGAN [Concomitant]
  14. KAYEXALATE [Concomitant]
  15. INSULIN [Concomitant]
  16. 1 CONCOMITANT DRUG [Concomitant]
     Dosage: DRUG REPORTED AS NACHO3.
  17. 1 CONCOMITANT DRUG [Concomitant]
     Dosage: DRUG REPORTED AS GAS EX.
  18. CLOTRIMAZOL [Concomitant]
  19. NYSTATIN [Concomitant]

REACTIONS (3)
  - GRAFT DYSFUNCTION [None]
  - HAEMODIALYSIS [None]
  - HYPERKALAEMIA [None]
